FAERS Safety Report 6661242-8 (Version None)
Quarter: 2010Q1

REPORT INFORMATION
  Report Type: 
  Country: None (occurrence: None)
  Receive Date: 20100331
  Receipt Date: 20100326
  Transmission Date: 20100710
  Serious: Yes (Other)
  Sender: FDA-Public Use
  Company Number: FR-ROCHE-693777

PATIENT
  Sex: Female

DRUGS (2)
  1. AVASTIN [Suspect]
     Indication: OVARIAN CANCER
     Route: 065
  2. GEMZAR [Suspect]
     Indication: OVARIAN CANCER
     Route: 065

REACTIONS (3)
  - HAEMANGIOMA [None]
  - HEADACHE [None]
  - PARAESTHESIA [None]
